FAERS Safety Report 12735476 (Version 1)
Quarter: 2016Q3

REPORT INFORMATION
  Report Type: Spontaneous
  Country: US (occurrence: US)
  Receive Date: 20160912
  Receipt Date: 20160912
  Transmission Date: 20161109
  Serious: Yes (Other)
  Sender: FDA-Public Use
  Company Number: US-PFIZER INC-2016422509

PATIENT
  Age: 63 Year
  Sex: Male
  Weight: 81.63 kg

DRUGS (1)
  1. EPIPEN [Suspect]
     Active Substance: EPINEPHRINE
     Indication: HYPERSENSITIVITY
     Dosage: 0.3 MG, PRN
     Route: 030
     Dates: start: 201605, end: 201605

REACTIONS (6)
  - Loss of consciousness [Recovered/Resolved]
  - Expired product administered [Recovered/Resolved]
  - Product quality issue [Recovered/Resolved]
  - Skeletal injury [Recovered/Resolved]
  - Foreign body [Recovered/Resolved]
  - Drug administration error [Unknown]

NARRATIVE: CASE EVENT DATE: 201605
